FAERS Safety Report 7109759-6 (Version None)
Quarter: 2010Q4

REPORT INFORMATION
  Report Type: 
  Country: None (occurrence: None)
  Receive Date: 20101116
  Receipt Date: 20101116
  Transmission Date: 20110411
  Serious: Yes (Death)
  Sender: FDA-Public Use
  Company Number: None

PATIENT
  Sex: Male
  Weight: 74.8435 kg

DRUGS (8)
  1. KEPPRA [Suspect]
     Indication: CONVULSION
     Dosage: 500 MG 2X DAILY MOUTH
     Route: 048
     Dates: start: 20100801, end: 20101001
  2. IMODIUM [Concomitant]
  3. XANAX [Suspect]
  4. NEXIUM [Concomitant]
  5. METOCLOPRAM [Concomitant]
  6. DICYCLOMINE [Concomitant]
  7. LORTAB [Concomitant]
  8. SOMA [Concomitant]

REACTIONS (6)
  - AGGRESSION [None]
  - AMNESIA [None]
  - CONVULSION [None]
  - GUN SHOT WOUND [None]
  - INSOMNIA [None]
  - INTENTIONAL SELF-INJURY [None]
